FAERS Safety Report 24563733 (Version 1)
Quarter: 2024Q4

REPORT INFORMATION
  Report Type: Report from Study
  Country: IN (occurrence: IN)
  Receive Date: 20241030
  Receipt Date: 20241030
  Transmission Date: 20250115
  Serious: Yes (Hospitalization, Other)
  Sender: ROCHE
  Company Number: IN-ROCHE-10000010682

PATIENT
  Age: 56 Year
  Sex: Female

DRUGS (1)
  1. PERJETA [Suspect]
     Active Substance: PERTUZUMAB
     Indication: Breast cancer
     Route: 042
     Dates: start: 20230206

REACTIONS (21)
  - Asthenia [Unknown]
  - Malaise [Unknown]
  - Bicytopenia [Unknown]
  - Klebsiella infection [Unknown]
  - Myelosuppression [Unknown]
  - Peripheral swelling [Unknown]
  - Ascites [Unknown]
  - Dizziness [Unknown]
  - Urosepsis [Unknown]
  - Bicytopenia [Unknown]
  - Generalised oedema [Unknown]
  - Mucosal inflammation [Unknown]
  - Ascites [Unknown]
  - Pyrexia [Unknown]
  - Full blood count abnormal [Unknown]
  - Neutropenia [Unknown]
  - Thrombocytopenia [Unknown]
  - Headache [Unknown]
  - Vomiting [Unknown]
  - Sepsis [Unknown]
  - Weight decreased [Unknown]
